FAERS Safety Report 24773637 (Version 5)
Quarter: 2025Q4

REPORT INFORMATION
  Report Type: Report from Study
  Country: JP (occurrence: JP)
  Receive Date: 20241225
  Receipt Date: 20251221
  Transmission Date: 20260118
  Serious: Yes (Death, Other)
  Sender: ABBVIE
  Company Number: JP-TAKEDA-2024TJP018268

PATIENT
  Age: 73 Year
  Sex: Male
  Weight: 53 kg

DRUGS (11)
  1. LUPRON [Suspect]
     Active Substance: LEUPROLIDE ACETATE
     Indication: Bulbospinal muscular atrophy congenital
     Dosage: FORM STRENGTH:11.25 MILLIGRAM, Q3MONTHS
     Route: 058
     Dates: start: 20180220, end: 20241129
  2. UNISIA [Concomitant]
     Active Substance: AMLODIPINE BESYLATE\CANDESARTAN CILEXETIL
     Indication: Product used for unknown indication
     Dosage: 1 DOSAGE FORM
  3. TOCOPHERYL NICOTINATE, D-.ALPHA. [Concomitant]
     Active Substance: TOCOPHERYL NICOTINATE, D-.ALPHA.
     Indication: Product used for unknown indication
     Dosage: 600 MILLIGRAM
  4. AMBROXOL HYDROCHLORIDE [Concomitant]
     Active Substance: AMBROXOL HYDROCHLORIDE
     Indication: Bronchitis chronic
     Dosage: 45 MILLIGRAM
  5. KETOPROFEN [Concomitant]
     Active Substance: KETOPROFEN
     Indication: Bulbospinal muscular atrophy congenital
     Dates: start: 20180427
  6. HERBALS [Concomitant]
     Active Substance: HERBALS
     Indication: Dyspepsia
     Dosage: 7.5 GRAM
  7. UNSPECIFIED INGREDIENT [Concomitant]
     Active Substance: UNSPECIFIED INGREDIENT
     Indication: Abdominal discomfort
     Dosage: 3 DOSAGE FORM
     Route: 065
  8. Depas [Concomitant]
     Indication: Insomnia
     Dosage: 0.5 MILLIGRAM
  9. GASLON [Concomitant]
     Active Substance: IRSOGLADINE MALEATE
     Indication: Gastric ulcer
     Dosage: 4 MILLIGRAM
  10. CARBOCYSTEINE [Concomitant]
     Active Substance: CARBOCYSTEINE
     Indication: Bronchitis chronic
     Dosage: 1500 MILLIGRAM
  11. NEXIUM [Concomitant]
     Active Substance: ESOMEPRAZOLE MAGNESIUM
     Indication: Gastric ulcer
     Dosage: 20 MILLIGRAM

REACTIONS (1)
  - Death [Fatal]

NARRATIVE: CASE EVENT DATE: 20241201
